FAERS Safety Report 10282525 (Version 1)
Quarter: 2014Q3

REPORT INFORMATION
  Report Type: Spontaneous
  Country: US (occurrence: US)
  Receive Date: 20140707
  Receipt Date: 20140707
  Transmission Date: 20150326
  Serious: No
  Sender: FDA-Public Use
  Company Number: US-ASTRAZENECA-2014SE40528

PATIENT
  Age: 86 Year
  Sex: Female
  Weight: 60.8 kg

DRUGS (1)
  1. NEXIUM 24HR [Suspect]
     Active Substance: ESOMEPRAZOLE MAGNESIUM
     Dosage: ONCE DAILY
     Route: 048

REACTIONS (2)
  - Insomnia [Unknown]
  - Nausea [Unknown]
